FAERS Safety Report 7552690-2 (Version None)
Quarter: 2011Q2

REPORT INFORMATION
  Report Type: 
  Country: None (occurrence: None)
  Receive Date: 20110616
  Receipt Date: 20110607
  Transmission Date: 20111010
  Serious: Yes (Death, Hospitalization)
  Sender: FDA-Public Use
  Company Number: JP-SANOFI-AVENTIS-2011SA037201

PATIENT
  Age: 47 Year
  Sex: Male

DRUGS (3)
  1. LANTUS [Suspect]
     Route: 065
  2. INSULIN ASPART [Concomitant]
     Route: 065
  3. ANTIDEPRESSANTS [Concomitant]
     Route: 065

REACTIONS (2)
  - PNEUMONIA ASPIRATION [None]
  - HYPOGLYCAEMIC COMA [None]
